FAERS Safety Report 22109011 (Version 2)
Quarter: 2023Q1

REPORT INFORMATION
  Report Type: Report from Study
  Country: CA (occurrence: CA)
  Receive Date: 20230317
  Receipt Date: 20230324
  Transmission Date: 20230417
  Serious: Yes (Other)
  Sender: FDA-Public Use
  Company Number: CA-002147023-NVSC2023CA018584

PATIENT
  Age: 74 Year
  Sex: Female

DRUGS (1)
  1. CYCLOSPORINE [Suspect]
     Active Substance: CYCLOSPORINE
     Indication: Aplastic anaemia
     Dosage: UNK
     Route: 065
     Dates: start: 20220428, end: 20221114

REACTIONS (4)
  - Renal impairment [Unknown]
  - Hypertension [Unknown]
  - Drug ineffective [Unknown]
  - Product use in unapproved indication [Unknown]
